FAERS Safety Report 10653032 (Version 1)
Quarter: 2014Q4

REPORT INFORMATION
  Report Type: Spontaneous
  Country: JP (occurrence: JP)
  Receive Date: 20141215
  Receipt Date: 20141215
  Transmission Date: 20150529
  Serious: Yes (Hospitalization)
  Sender: FDA-Public Use
  Company Number: PHHY2014JP162581

PATIENT
  Age: 84 Year
  Sex: Male

DRUGS (4)
  1. EXELON [Suspect]
     Active Substance: RIVASTIGMINE TARTRATE
     Dosage: 9 MG, QD
     Route: 062
     Dates: start: 20130222
  2. EXELON [Suspect]
     Active Substance: RIVASTIGMINE TARTRATE
     Indication: DEMENTIA ALZHEIMER^S TYPE
     Dosage: 18 MG, QD
     Route: 062
     Dates: start: 20121217, end: 20130221
  3. GASMOTIN [Concomitant]
     Active Substance: MOSAPRIDE CITRATE
     Indication: ENTEROCOLITIS
     Dosage: 10 MG, UNK
     Route: 048
     Dates: start: 20121226, end: 20130501
  4. LANSOPRAZOLE. [Concomitant]
     Active Substance: LANSOPRAZOLE
     Indication: GASTROOESOPHAGEAL REFLUX DISEASE
     Dosage: 30 MG, UNK
     Route: 048
     Dates: start: 20121226, end: 20130306

REACTIONS (5)
  - Pneumonia [Recovering/Resolving]
  - Diarrhoea [Recovering/Resolving]
  - Escherichia test positive [Unknown]
  - Pneumonia aspiration [Unknown]
  - Blood cholinesterase decreased [Unknown]

NARRATIVE: CASE EVENT DATE: 20130126
